FAERS Safety Report 5842342-9 (Version None)
Quarter: 2008Q3

REPORT INFORMATION
  Report Type: 
  Country: None (occurrence: None)
  Receive Date: 20080731
  Receipt Date: 20080520
  Transmission Date: 20090109
  Serious: No
  Sender: FDA-Public Use
  Company Number: US200802006663

PATIENT
  Age: 61 Year
  Sex: Male
  Weight: 131.5 kg

DRUGS (12)
  1. BYETTA [Suspect]
     Indication: METABOLIC SYNDROME
     Dosage: 5 UG, 2/D, SUBCUTANEOUS; 10 UG, 2/D, SUBCUTANEOUS
     Route: 058
     Dates: start: 20080118, end: 20080219
  2. BYETTA [Suspect]
     Indication: METABOLIC SYNDROME
     Dosage: 5 UG, 2/D, SUBCUTANEOUS; 10 UG, 2/D, SUBCUTANEOUS
     Route: 058
     Dates: start: 20080220, end: 20080226
  3. EXENATIDE 10MCG PEN, DISPOSABLE DEVICE (EXENATIDE PEN (10MCG)) PEN,DIS [Concomitant]
  4. ASPIRIN [Concomitant]
  5. PROCARDIA XL [Concomitant]
  6. LASIX [Concomitant]
  7. CENTRUM SILVER (ASCORBIC ACID, CALCIUM, MINERALS NOS, RETINOL, TOCOPHE [Concomitant]
  8. PRINIVIL [Concomitant]
  9. PRAVACHOL [Concomitant]
  10. NITROQUICK (GLYCERYL TRINITRATE) [Concomitant]
  11. PEPCID [Concomitant]
  12. ATACAND [Concomitant]

REACTIONS (4)
  - CHEST PAIN [None]
  - HEADACHE [None]
  - STOMACH DISCOMFORT [None]
  - WEIGHT DECREASED [None]
